FAERS Safety Report 7918541-9 (Version None)
Quarter: 2011Q4

REPORT INFORMATION
  Report Type: 
  Country: None (occurrence: None)
  Receive Date: 20111116
  Receipt Date: 20111101
  Transmission Date: 20120403
  Serious: Yes (Other)
  Sender: FDA-Public Use
  Company Number: AR-WATSON-2011-17938

PATIENT
  Age: 26 Year
  Sex: Female

DRUGS (2)
  1. CYCLOPHOSPHAMIDE [Suspect]
     Indication: IMMUNOSUPPRESSANT DRUG THERAPY
     Dosage: UNKNOWN
     Route: 065
  2. PREDNISONE TAB [Suspect]
     Indication: IMMUNOSUPPRESSANT DRUG THERAPY
     Dosage: UNKNOWN
     Route: 065

REACTIONS (4)
  - CENTRAL NERVOUS SYSTEM LESION [None]
  - LUNG ABSCESS [None]
  - NOCARDIOSIS [None]
  - EYE ABSCESS [None]
